FAERS Safety Report 5874461-5 (Version None)
Quarter: 2008Q3

REPORT INFORMATION
  Report Type: 
  Country: None (occurrence: None)
  Receive Date: 20080908
  Receipt Date: 20080827
  Transmission Date: 20090109
  Serious: Yes (Hospitalization, Other)
  Sender: FDA-Public Use
  Company Number: AU-PFIZER INC-2008072758

PATIENT
  Sex: Male

DRUGS (8)
  1. CHANTIX [Suspect]
  2. WARFARIN SODIUM [Suspect]
     Indication: DEEP VEIN THROMBOSIS
  3. ACETAMINOPHEN [Concomitant]
  4. MS CONTIN [Concomitant]
  5. COVERSYL [Concomitant]
  6. LASIX [Concomitant]
  7. ALVESCO [Concomitant]
  8. SPIRIVA [Concomitant]

REACTIONS (1)
  - HAEMORRHAGE [None]
